FAERS Safety Report 23848415 (Version 3)
Quarter: 2025Q2

REPORT INFORMATION
  Report Type: Report from Study
  Country: CA (occurrence: CA)
  Receive Date: 20240513
  Receipt Date: 20250523
  Transmission Date: 20250716
  Serious: Yes (Hospitalization, Other)
  Sender: TAKEDA
  Company Number: CA-TAKEDA-2024TUS044627

PATIENT
  Age: 63 Year
  Sex: Male

DRUGS (2)
  1. VEDOLIZUMAB [Suspect]
     Active Substance: VEDOLIZUMAB
     Indication: Colitis ulcerative
     Dosage: 300 MILLIGRAM, Q4WEEKS
  2. VEDOLIZUMAB [Suspect]
     Active Substance: VEDOLIZUMAB

REACTIONS (6)
  - Pulmonary embolism [Recovering/Resolving]
  - Contusion [Recovering/Resolving]
  - Off label use [Unknown]
  - Diarrhoea [Unknown]
  - Frequent bowel movements [Unknown]
  - Cough [Unknown]

NARRATIVE: CASE EVENT DATE: 20240412
